FAERS Safety Report 6715542-3 (Version None)
Quarter: 2010Q2

REPORT INFORMATION
  Report Type: 
  Country: None (occurrence: None)
  Receive Date: 20100506
  Receipt Date: 20100506
  Transmission Date: 20101027
  Serious: Yes (Hospitalization)
  Sender: FDA-Public Use
  Company Number: None

PATIENT
  Age: 42 Year
  Sex: Female
  Weight: 87 kg

DRUGS (4)
  1. CLONIDINE [Suspect]
     Indication: HYPERTENSION
     Dosage: 0.2MG/HR WEEKLY TOPICAL OUTPT DOSE
     Route: 061
  2. LISINOPRIL [Concomitant]
  3. LABETALOL HCL [Concomitant]
  4. FUROSEMIDE [Concomitant]

REACTIONS (4)
  - DIZZINESS [None]
  - HYPERTENSIVE CRISIS [None]
  - HYPOTENSION [None]
  - VISION BLURRED [None]
